FAERS Safety Report 9400783 (Version 1)
Quarter: 2013Q3

REPORT INFORMATION
  Report Type: Spontaneous
  Country: FR (occurrence: FR)
  Receive Date: 20130715
  Receipt Date: 20130715
  Transmission Date: 20140515
  Serious: Yes (Hospitalization)
  Sender: FDA-Public Use
  Company Number: FR-PFIZER INC-2013201067

PATIENT
  Age: 39 Year
  Sex: Female

DRUGS (3)
  1. ZITHROMAX [Suspect]
     Indication: EYE INFECTION TOXOPLASMAL
     Dosage: 250 MG, 1X/DAY
     Route: 048
     Dates: start: 20130602
  2. MALOCIDE [Suspect]
     Indication: EYE INFECTION TOXOPLASMAL
     Dosage: 50 MG, 1X/DAY
     Route: 048
     Dates: start: 20130602
  3. DEXAFREE [Concomitant]
     Indication: EYE INFECTION TOXOPLASMAL
     Dosage: 1 DF, 4X/DAY
     Route: 047
     Dates: start: 20130602

REACTIONS (1)
  - Tonic convulsion [Recovered/Resolved]
